FAERS Safety Report 8736239 (Version 2)
Quarter: 2012Q4

REPORT INFORMATION
  Report Type: 
  Country: US (occurrence: US)
  Receive Date: 20120822
  Receipt Date: 20120911
  Transmission Date: 20130627
  Serious: Yes (Other)
  Sender: FDA-Public Use
  Company Number: US-PFIZER INC-2012201298

PATIENT
  Age: 71 Year
  Sex: Female
  Weight: 58.05 kg

DRUGS (6)
  1. LYRICA [Suspect]
     Indication: POLYNEUROPATHY
     Dosage: 50 mg, 3x/day
     Route: 048
     Dates: start: 20120802, end: 201208
  2. LYRICA [Suspect]
     Indication: NEUROPATHY PERIPHERAL
     Dosage: 50 mg, 2x/day
     Route: 048
     Dates: start: 20120814
  3. ATENOLOL [Concomitant]
     Indication: HYPERTENSION
     Dosage: 25 mg, 1x/day
  4. ATENOLOL [Concomitant]
     Indication: HYPERTENSION
  5. HYDROCODONE/APAP [Concomitant]
     Indication: PAIN
     Dosage: 7.5/325, as needed
  6. DIAZEPAM [Concomitant]
     Dosage: 5 mg, UNK

REACTIONS (3)
  - Heart rate increased [Not Recovered/Not Resolved]
  - Extrasystoles [Not Recovered/Not Resolved]
  - Heart rate abnormal [Not Recovered/Not Resolved]
